FAERS Safety Report 7844229-9 (Version None)
Quarter: 2011Q4

REPORT INFORMATION
  Report Type: 
  Country: None (occurrence: None)
  Receive Date: 20111025
  Receipt Date: 20111011
  Transmission Date: 20120403
  Serious: Yes (Hospitalization)
  Sender: FDA-Public Use
  Company Number: US-ELI_LILLY_AND_COMPANY-US201108002558

PATIENT
  Sex: Female
  Weight: 55 kg

DRUGS (15)
  1. EVISTA [Suspect]
     Indication: OSTEOPOROSIS PROPHYLAXIS
     Dosage: 60 MG, QD
     Route: 048
  2. FORTEO [Suspect]
     Indication: OSTEOPOROSIS POSTMENOPAUSAL
     Dosage: 20 UG, QD
     Route: 058
  3. CLONAZEPAM [Concomitant]
     Dosage: 1 DF, TID
     Route: 048
     Dates: start: 20091105
  4. SYSTANE [Concomitant]
     Dosage: UNK, OTHER
     Dates: start: 20110224
  5. TYLENOL W/ CODEINE [Concomitant]
     Indication: PAIN
     Dosage: UNK, OTHER
     Route: 048
     Dates: start: 20060411
  6. NASAL SALINE [Concomitant]
     Dosage: 1 DF, BID
     Route: 045
     Dates: start: 20110224
  7. CITRACAL-D [Concomitant]
     Dosage: 2 DF, QD
     Dates: start: 20051011
  8. VITAMIN D [Concomitant]
     Dosage: 1 DF, QD
     Route: 048
     Dates: start: 20071116
  9. FORTEO [Suspect]
     Dosage: 20 UG, QD
     Route: 058
  10. DOCUSATE SODIUM [Concomitant]
     Dosage: UNK, OTHER
     Route: 048
     Dates: start: 20060816
  11. FLUOXETINE HYDROCHLORIDE [Concomitant]
     Dosage: 1 DF, QD
     Route: 048
  12. MIDRIN [Concomitant]
     Indication: HEADACHE
     Dosage: UNK, OTHER
     Dates: start: 20081023
  13. EVISTA [Suspect]
     Dosage: 60 MG, QD
     Route: 048
  14. CENTRUM SILVER [Concomitant]
     Dosage: 1 DF, QD
     Dates: start: 20051011
  15. SEROQUEL [Concomitant]
     Dosage: 1 DF, EACH EVENING
     Route: 048
     Dates: start: 20110406

REACTIONS (12)
  - PAIN [None]
  - CONFUSIONAL STATE [None]
  - LUMBAR VERTEBRAL FRACTURE [None]
  - LUMBAR SPINAL STENOSIS [None]
  - POST-TRAUMATIC STRESS DISORDER [None]
  - MOBILITY DECREASED [None]
  - DECREASED APPETITE [None]
  - OSTEOPOROSIS [None]
  - NAUSEA [None]
  - FALL [None]
  - ROAD TRAFFIC ACCIDENT [None]
  - BONE PAIN [None]
